FAERS Safety Report 5849042-X (Version None)
Quarter: 2008Q3

REPORT INFORMATION
  Report Type: 
  Country: None (occurrence: None)
  Receive Date: 20080819
  Receipt Date: 20080813
  Transmission Date: 20090109
  Serious: Yes (Life-Threatening, Hospitalization, Other)
  Sender: FDA-Public Use
  Company Number: DE-CELGENEUS-062-21880-08061839

PATIENT
  Age: 61 Year
  Sex: Male

DRUGS (2)
  1. REVLIMID [Suspect]
     Indication: MULTIPLE MYELOMA
     Route: 048
     Dates: start: 20080616, end: 20080623
  2. FORTECORTIN [Concomitant]
     Indication: MULTIPLE MYELOMA
     Route: 065
     Dates: start: 20080617, end: 20080620

REACTIONS (13)
  - ACUTE HEPATIC FAILURE [None]
  - ANAEMIA [None]
  - ANAL INFLAMMATION [None]
  - BRONCHITIS CHRONIC [None]
  - COAGULOPATHY [None]
  - CONVULSION [None]
  - JAUNDICE [None]
  - MITRAL VALVE INCOMPETENCE [None]
  - MITRAL VALVE PROLAPSE [None]
  - PANCYTOPENIA [None]
  - PYREXIA [None]
  - SUBDURAL HAEMORRHAGE [None]
  - THROMBOCYTOPENIA [None]
